FAERS Safety Report 21802738 (Version 1)
Quarter: 2022Q4

REPORT INFORMATION
  Report Type: Report from Study
  Country: MX (occurrence: MX)
  Receive Date: 20221231
  Receipt Date: 20221231
  Transmission Date: 20230113
  Serious: Yes (Other)
  Sender: FDA-Public Use
  Company Number: MX-002147023-NVSC2022MX275344

PATIENT
  Age: 59 Year
  Sex: Male
  Weight: 98 kg

DRUGS (1)
  1. EXFORGE HCT [Suspect]
     Active Substance: AMLODIPINE BESYLATE\HYDROCHLOROTHIAZIDE\VALSARTAN
     Indication: Hypertension
     Dosage: 0.5 DOSAGE FORM, QD
     Route: 048
     Dates: start: 20200301, end: 20221001

REACTIONS (8)
  - Hypothyroidism [Not Recovered/Not Resolved]
  - Diabetes mellitus [Not Recovered/Not Resolved]
  - Blood uric acid increased [Recovered/Resolved]
  - Thyroid mass [Recovered/Resolved]
  - Glucose tolerance impaired [Not Recovered/Not Resolved]
  - Prostatic disorder [Unknown]
  - Pain [Recovered/Resolved]
  - Wrong technique in product usage process [Recovered/Resolved]

NARRATIVE: CASE EVENT DATE: 20200301
